FAERS Safety Report 21505177 (Version 2)
Quarter: 2022Q4

REPORT INFORMATION
  Report Type: Other
  Country: US (occurrence: US)
  Receive Date: 20221026
  Receipt Date: 20221121
  Transmission Date: 20230112
  Serious: Yes (Other)
  Sender: FDA-Public Use
  Company Number: US-GBT-017420

PATIENT
  Age: 17 Year
  Sex: Female

DRUGS (1)
  1. OXBRYTA [Suspect]
     Active Substance: VOXELOTOR
     Indication: Sickle cell disease
     Route: 048
     Dates: end: 20220801

REACTIONS (4)
  - Bone marrow transplant [Unknown]
  - Nausea [Unknown]
  - Abdominal pain [Unknown]
  - Therapy cessation [Unknown]

NARRATIVE: CASE EVENT DATE: 20220801
